FAERS Safety Report 8286494-2 (Version None)
Quarter: 2012Q2

REPORT INFORMATION
  Report Type: 
  Country: None (occurrence: None)
  Receive Date: 20120416
  Receipt Date: 20120410
  Transmission Date: 20120825
  Serious: Yes (Other)
  Sender: FDA-Public Use
  Company Number: US-PFIZER INC-2012075285

PATIENT
  Sex: Female
  Weight: 58.957 kg

DRUGS (8)
  1. CHANTIX [Suspect]
     Indication: SMOKING CESSATION THERAPY
     Dosage: 0.5 MG, DAILY
     Route: 048
     Dates: start: 20120308, end: 20120301
  2. CHANTIX [Suspect]
     Dosage: 0.5 MG, 2X/DAY
     Route: 048
     Dates: start: 20120301
  3. LISINOPRIL [Concomitant]
     Indication: BLOOD PRESSURE ABNORMAL
     Dosage: 10 MG, DAILY
  4. EFFIENT [Concomitant]
     Indication: ANTICOAGULANT THERAPY
     Dosage: 10 MG, DAILY
  5. PRAVASTATIN [Concomitant]
     Indication: BLOOD CHOLESTEROL ABNORMAL
     Dosage: 40 MG, DAILY
  6. EFFIENT [Concomitant]
     Indication: STENT PLACEMENT
  7. CHANTIX [Suspect]
     Dosage: 0.5 MG, 2X/DAY
     Route: 048
     Dates: start: 20120301, end: 20120315
  8. DILTIAZEM [Concomitant]
     Dosage: 180 MG, DAILY

REACTIONS (7)
  - DYSPEPSIA [None]
  - ABDOMINAL DISCOMFORT [None]
  - CARDIAC DISORDER [None]
  - MOOD SWINGS [None]
  - ANXIETY [None]
  - IRRITABILITY [None]
  - NAUSEA [None]
